FAERS Safety Report 25742437 (Version 1)
Quarter: 2025Q3

REPORT INFORMATION
  Report Type: Spontaneous
  Country: CA (occurrence: CA)
  Receive Date: 20250829
  Receipt Date: 20250829
  Transmission Date: 20251021
  Serious: Yes (Congenital Anomaly, Other)
  Sender: PFIZER
  Company Number: CA-PFIZER INC-202500171305

PATIENT
  Sex: Male

DRUGS (5)
  1. RITUXIMAB [Suspect]
     Active Substance: RITUXIMAB
     Route: 064
  2. QUETIAPINE [Suspect]
     Active Substance: QUETIAPINE
     Route: 064
  3. GABAPENTIN [Suspect]
     Active Substance: GABAPENTIN
     Route: 064
  4. LEVOTHYROXINE SODIUM [Suspect]
     Active Substance: LEVOTHYROXINE SODIUM
     Route: 064
  5. LITHIUM ASPARTATE [Suspect]
     Active Substance: LITHIUM ASPARTATE
     Route: 064

REACTIONS (2)
  - Heart disease congenital [Unknown]
  - Foetal exposure during pregnancy [Unknown]
